FAERS Safety Report 9403144 (Version 1)
Quarter: 2013Q3

REPORT INFORMATION
  Report Type: Spontaneous
  Country: US (occurrence: None)
  Receive Date: 20130715
  Receipt Date: 20130715
  Transmission Date: 20140515
  Serious: Yes (Life-Threatening, Hospitalization)
  Sender: FDA-Public Use
  Company Number: None

PATIENT
  Age: 5 Year
  Sex: Male

DRUGS (1)
  1. NOCTEC [Suspect]
     Dosage: ADMINISTERED AT SAN JORGE CHILDREN HOSPT. AT SANTURCE, SAN JUAN. PR

REACTIONS (4)
  - Swelling face [None]
  - Local swelling [None]
  - Somnolence [None]
  - Dyspnoea [None]
